FAERS Safety Report 9649370 (Version 5)
Quarter: 2014Q2

REPORT INFORMATION
  Report Type: Report from Study
  Country: US (occurrence: US)
  Receive Date: 20131028
  Receipt Date: 20140422
  Transmission Date: 20141212
  Serious: Yes (Life-Threatening, Other)
  Sender: FDA-Public Use
  Company Number: US-BAYER-2013-093499

PATIENT
  Age: 64 Year
  Sex: Female

DRUGS (19)
  1. SORAFENIB (RAF KINASE INHIBITOR) [Suspect]
     Indication: BREAST CANCER STAGE IV
     Dosage: 200 MG, UNK
     Route: 048
     Dates: start: 20130726, end: 20130729
  2. SORAFENIB (RAF KINASE INHIBITOR) [Suspect]
     Indication: BREAST CANCER STAGE IV
  3. AMBIEN [Concomitant]
     Dosage: 10 MG, UNK
     Dates: start: 20130321
  4. CIPROFLOXACIN [Concomitant]
     Indication: URINARY TRACT INFECTION
     Dosage: 500 MG, BID
     Route: 048
     Dates: start: 20130722
  5. DEXAMETHASONE [Concomitant]
     Indication: NEUROLOGICAL SYMPTOM
     Dosage: 2 MG, BID
     Route: 048
     Dates: start: 20130321
  6. DEXAMETHASONE [Concomitant]
     Indication: NEUROLOGICAL SYMPTOM
     Dosage: 4 MG DAILY
     Dates: start: 20130712, end: 20130819
  7. ESOMEPRAZOLE MAGNESIUM [Concomitant]
     Dosage: 20 MG, UNK
     Dates: start: 20130321
  8. LEVOTHYROXINE [Concomitant]
     Indication: THYROID DISORDER
     Dosage: 0.112
     Route: 048
     Dates: start: 20130321
  9. LORAZEPAM [Concomitant]
     Dosage: 1 MG, PRN
     Dates: start: 20130729
  10. OMEGA-3 FATTY ACIDS [Concomitant]
     Dosage: UNK
     Dates: start: 20130321
  11. SENNA [Concomitant]
     Dosage: 4 TABLETS
     Dates: start: 20130321
  12. POTASSIUM CHLORIDE [Concomitant]
     Indication: HYPOKALAEMIA
     Dosage: 160 MG, TID
     Dates: start: 20130321
  13. POTASSIUM CHLORIDE [Concomitant]
     Indication: HYPOKALAEMIA
     Dosage: 160 MG DAILY
     Route: 048
  14. POTASSIUM CHLORIDE [Concomitant]
     Indication: HYPOKALAEMIA
     Dosage: 180 MG, UNK
  15. VITAMIN B COMPLEX [Concomitant]
     Dosage: UNK
     Dates: start: 20130321
  16. ZINC [Concomitant]
     Dosage: UNK
     Dates: start: 20130321
  17. HYDROCHLOROTHIAZIDE [Concomitant]
     Indication: NEPHROLITHIASIS
     Dosage: 25 MG, QD
     Route: 048
  18. TAMOXIFEN [Concomitant]
     Indication: NEOPLASM MALIGNANT
     Dosage: 20 MG, BID
     Route: 048
  19. CYSTEX [Concomitant]
     Indication: URINARY TRACT INFECTION

REACTIONS (3)
  - Lipase increased [Recovering/Resolving]
  - Amylase increased [Recovering/Resolving]
  - Hyperamylasaemia [None]
